FAERS Safety Report 8312795-5 (Version None)
Quarter: 2012Q2

REPORT INFORMATION
  Report Type: 
  Country: None (occurrence: None)
  Receive Date: 20120426
  Receipt Date: 20120424
  Transmission Date: 20120825
  Serious: No
  Sender: FDA-Public Use
  Company Number: US-PFIZER INC-2012101598

PATIENT
  Sex: Female

DRUGS (3)
  1. PROCARDIA [Concomitant]
     Indication: HYPERTENSION
     Dosage: 60 MG, UNK
  2. VIAGRA [Suspect]
     Indication: OFF LABEL USE
     Dosage: 25 MG, 1X/DAY
     Route: 048
     Dates: start: 20120419
  3. ATENOLOL [Concomitant]
     Dosage: 25 MG, UNK

REACTIONS (1)
  - THERAPEUTIC RESPONSE UNEXPECTED [None]
